FAERS Safety Report 6631059-9 (Version None)
Quarter: 2010Q1

REPORT INFORMATION
  Report Type: 
  Country: None (occurrence: None)
  Receive Date: 20100311
  Receipt Date: 20100304
  Transmission Date: 20100710
  Serious: Yes (Death)
  Sender: FDA-Public Use
  Company Number: US-ABBOTT-10P-163-0630353-00

PATIENT
  Age: 42 Year
  Sex: Male

DRUGS (7)
  1. HYDROCODONE [Suspect]
     Indication: DRUG USE FOR UNKNOWN INDICATION
  2. CITALOPRAM HYDROBROMIDE [Suspect]
     Indication: DRUG USE FOR UNKNOWN INDICATION
  3. OXYCODONE [Suspect]
     Indication: DRUG USE FOR UNKNOWN INDICATION
  4. OXYMORPHONE [Suspect]
     Indication: DRUG USE FOR UNKNOWN INDICATION
  5. DIHYDROCODEINE BITARTRATE INJ [Suspect]
     Indication: DRUG USE FOR UNKNOWN INDICATION
  6. THC [Suspect]
     Indication: DRUG USE FOR UNKNOWN INDICATION
  7. LORAZEPAM [Suspect]
     Indication: DRUG USE FOR UNKNOWN INDICATION

REACTIONS (2)
  - COMPLETED SUICIDE [None]
  - DRUG TOXICITY [None]
